FAERS Safety Report 8576060 (Version 3)
Quarter: 2012Q4

REPORT INFORMATION
  Report Type: 
  Country: JP (occurrence: JP)
  Receive Date: 20120523
  Receipt Date: 20121106
  Transmission Date: 20130627
  Serious: Yes (Hospitalization)
  Sender: FDA-Public Use
  Company Number: JP-GLAXOSMITHKLINE-B0802962A

PATIENT
  Age: 4 Year
  Sex: Male

DRUGS (4)
  1. FLUTIDE [Suspect]
     Indication: PRODUCT USED FOR UNKNOWN INDICATION
     Route: 055
  2. PRANLUKAST HYDRATE [Concomitant]
     Route: 048
  3. KETOTIFEN FUMARATE [Concomitant]
     Route: 048
  4. TULOBUTEROL [Concomitant]
     Route: 062

REACTIONS (2)
  - Pneumonia [Unknown]
  - Tooth discolouration [Recovering/Resolving]
